FAERS Safety Report 6371707-4 (Version None)
Quarter: 2009Q3

REPORT INFORMATION
  Report Type: 
  Country: None (occurrence: None)
  Receive Date: 20090923
  Receipt Date: 20080718
  Transmission Date: 20100115
  Serious: Yes (Other)
  Sender: FDA-Public Use
  Company Number: US-ASTRAZENECA-2008UW14721

PATIENT
  Age: 10 Year
  Sex: Female

DRUGS (2)
  1. SEROQUEL [Suspect]
     Dosage: 25 MG FOR ONE DAY
     Route: 048
  2. SEROQUEL [Suspect]
     Dosage: 50 MG FOR THREE DAYS
     Route: 048

REACTIONS (1)
  - RASH PRURITIC [None]
